FAERS Safety Report 11472987 (Version 1)
Quarter: 2015Q3

REPORT INFORMATION
  Report Type: Spontaneous
  Country: US (occurrence: US)
  Receive Date: 20150908
  Receipt Date: 20150908
  Transmission Date: 20151125
  Serious: Yes (Other)
  Sender: FDA-Public Use
  Company Number: US-JAZZ-2014-US-007654

PATIENT
  Sex: Female

DRUGS (2)
  1. XYREM [Suspect]
     Active Substance: SODIUM OXYBATE
     Indication: PSYCHOGENIC PAIN DISORDER
  2. XYREM [Suspect]
     Active Substance: SODIUM OXYBATE
     Indication: SLEEP DISORDER
     Dosage: 4.5 G, BID
     Route: 048
     Dates: start: 200610

REACTIONS (4)
  - Fibromyalgia [Not Recovered/Not Resolved]
  - Off label use [Unknown]
  - Major depression [Not Recovered/Not Resolved]
  - Insomnia [Not Recovered/Not Resolved]
